FAERS Safety Report 9486699 (Version 1)
Quarter: 2013Q3

REPORT INFORMATION
  Report Type: Spontaneous
  Country: US (occurrence: None)
  Receive Date: 20130827
  Receipt Date: 20130827
  Transmission Date: 20140515
  Serious: No
  Sender: FDA-Public Use
  Company Number: None

PATIENT
  Age: 51 None
  Sex: Female

DRUGS (1)
  1. SULPHAMETHOXAZOLE/TRIMETHOPRIM [Suspect]
     Indication: BITE
     Route: 048
     Dates: start: 20130802, end: 20130806

REACTIONS (12)
  - Diarrhoea [None]
  - Myalgia [None]
  - Abasia [None]
  - Chest pain [None]
  - Rash [None]
  - Back pain [None]
  - Swelling face [None]
  - Vaginal discharge [None]
  - Dyspnoea [None]
  - Pruritus [None]
  - Feeling abnormal [None]
  - Chest discomfort [None]
